FAERS Safety Report 16230086 (Version 2)
Quarter: 2019Q2

REPORT INFORMATION
  Report Type: Report from Study
  Country: US (occurrence: US)
  Receive Date: 20190423
  Receipt Date: 20190429
  Transmission Date: 20190711
  Serious: Yes (Death, Life-Threatening, Hospitalization, Other)
  Sender: FDA-Public Use
  Company Number: US-BRISTOL-MYERS SQUIBB COMPANY-BMS-2019-037260

PATIENT

DRUGS (1)
  1. NIVOLUMAB [Suspect]
     Active Substance: NIVOLUMAB
     Indication: GLIOBLASTOMA MULTIFORME
     Dosage: UNK
     Route: 065

REACTIONS (12)
  - Immune thrombocytopenic purpura [Unknown]
  - Sepsis [Fatal]
  - Acute respiratory failure [Fatal]
  - Acute kidney injury [Unknown]
  - Aplasia pure red cell [Unknown]
  - Cardiac failure acute [Unknown]
  - Type 2 diabetes mellitus [Unknown]
  - Malnutrition [Unknown]
  - Cytomegalovirus oesophagitis [Unknown]
  - Pneumonia aspiration [Unknown]
  - Pneumonia [Unknown]
  - Delirium [Unknown]

NARRATIVE: CASE EVENT DATE: 20190226
